FAERS Safety Report 7991376 (Version 4)
Quarter: 2013Q4

REPORT INFORMATION
  Report Type: Spontaneous
  Country: US (occurrence: US)
  Receive Date: 20110615
  Receipt Date: 20131120
  Transmission Date: 20140711
  Serious: Yes (Hospitalization)
  Sender: FDA-Public Use
  Company Number: US-BAYER-2011-049724

PATIENT
  Age: 25 Year
  Sex: Female
  Weight: 96.6 kg

DRUGS (2)
  1. YAZ [Suspect]
     Dosage: UNK
     Dates: start: 200808, end: 201007
  2. MEDROXYPROGESTERONE [Concomitant]
     Dosage: 10 MG, UNK

REACTIONS (4)
  - Cholecystitis chronic [None]
  - Cholelithiasis [None]
  - Pain [None]
  - Injury [None]
